FAERS Safety Report 20045160 (Version 3)
Quarter: 2021Q4

REPORT INFORMATION
  Report Type: Spontaneous
  Country: CZ (occurrence: CZ)
  Receive Date: 20211108
  Receipt Date: 20211119
  Transmission Date: 20220303
  Serious: Yes (Hospitalization, Other)
  Sender: FDA-Public Use
  Company Number: CZ-Zentiva-2021-ZT-009880

PATIENT
  Age: 34 Year
  Sex: Male
  Weight: 117 kg

DRUGS (17)
  1. OLANZAPINE [Suspect]
     Active Substance: OLANZAPINE
     Indication: Schizophrenia
     Dosage: 20 MILLIGRAM
     Route: 048
  2. OLANZAPINE [Suspect]
     Active Substance: OLANZAPINE
     Dosage: UNK
     Route: 048
  3. OLANZAPINE [Suspect]
     Active Substance: OLANZAPINE
     Dosage: UNK
     Route: 048
  4. ARIPIPRAZOLE [Suspect]
     Active Substance: ARIPIPRAZOLE
     Indication: Schizophrenia
     Dosage: 30 MILLIGRAM
     Route: 065
  5. OLANZAPINE PAMOATE [Suspect]
     Active Substance: OLANZAPINE PAMOATE
     Indication: Schizophrenia
     Dosage: 300 MILLIGRAM,GRADUALLY REDUCED THE DOSE TO 300 MILLIGRAM
     Route: 030
  6. OLANZAPINE PAMOATE [Suspect]
     Active Substance: OLANZAPINE PAMOATE
     Dosage: 407MG DEPOT 1X PER MONTH AND GRADUALLY REDUCED THE DOSE TO 300 MG,FINALLY 210 MILLIGRAMS
     Route: 030
     Dates: start: 201504
  7. OLANZAPINE PAMOATE [Suspect]
     Active Substance: OLANZAPINE PAMOATE
     Dosage: 210 MG, MONTHLY (1/M)
     Route: 030
     Dates: end: 2018
  8. OLANZAPINE PAMOATE [Suspect]
     Active Substance: OLANZAPINE PAMOATE
     Indication: Schizophrenia
     Dosage: 105 MILLIGRAM
     Route: 065
  9. OLANZAPINE PAMOATE [Suspect]
     Active Substance: OLANZAPINE PAMOATE
     Dosage: UNK
     Route: 065
  10. SERTINDOLE [Concomitant]
     Active Substance: SERTINDOLE
     Indication: Schizophrenia
     Dosage: UNK
     Route: 065
  11. OLANZAPINE [Concomitant]
     Active Substance: OLANZAPINE
     Indication: Schizophrenia
     Dosage: 407 MILLIGRAM
     Route: 030
     Dates: start: 201504
  12. OLANZAPINE [Concomitant]
     Active Substance: OLANZAPINE
     Dosage: 210 MILLIGRAM, 210 MILLIGRAM DEPOT
     Route: 030
  13. OLANZAPINE [Concomitant]
     Active Substance: OLANZAPINE
     Dosage: 300 MILLIGRAM, GRADUALLY REDUCED THE DOSE TO 300 MILLIGRAM
     Route: 030
  14. BREXPIPRAZOLE [Concomitant]
     Active Substance: BREXPIPRAZOLE
     Indication: Schizophrenia
     Dosage: 1 MILLIGRAM, QW,1 MILLIGRAM, QW (AFTER EVERY WEEK)
  15. BREXPIPRAZOLE [Concomitant]
     Active Substance: BREXPIPRAZOLE
     Dosage: 2 MILLIGRAM, QW,2 MILLIGRAM, OD (INITIAL DOSE)
  16. CLOZAPINE [Concomitant]
     Active Substance: CLOZAPINE
     Indication: Schizophrenia
     Dosage: UNK
  17. QUETIAPINE [Concomitant]
     Active Substance: QUETIAPINE
     Indication: Schizophrenia
     Dosage: UNK

REACTIONS (4)
  - Treatment noncompliance [Recovered/Resolved]
  - Weight increased [Recovering/Resolving]
  - Drug ineffective [Unknown]
  - Schizophrenia [Unknown]
